FAERS Safety Report 8020955-6 (Version None)
Quarter: 2011Q4

REPORT INFORMATION
  Report Type: 
  Country: None (occurrence: None)
  Receive Date: 20111229
  Receipt Date: 20111229
  Transmission Date: 20120403
  Serious: Yes (Hospitalization)
  Sender: FDA-Public Use
  Company Number: None

PATIENT
  Sex: Female
  Weight: 60 kg

DRUGS (4)
  1. AMOXICILLIN [Concomitant]
  2. DOCETAXEL (TAXOTERE) [Suspect]
     Dosage: 122 MG
     Dates: end: 20111220
  3. OXYCODONE/ACETAMINOPHEN [Concomitant]
  4. CISPLATIN [Suspect]
     Dosage: 122 MG
     Dates: end: 20111220

REACTIONS (7)
  - HYPOKALAEMIA [None]
  - NAUSEA [None]
  - DYSPHAGIA [None]
  - HYPONATRAEMIA [None]
  - DIARRHOEA [None]
  - FATIGUE [None]
  - VOMITING [None]
